FAERS Safety Report 17481820 (Version 1)
Quarter: 2020Q1

REPORT INFORMATION
  Report Type: Spontaneous
  Country: IN (occurrence: IN)
  Receive Date: 20200302
  Receipt Date: 20200302
  Transmission Date: 20200409
  Serious: Yes (Hospitalization)
  Sender: FDA-Public Use
  Company Number: IN-STRIDES ARCOLAB LIMITED-2020SP002245

PATIENT
  Age: 58 Year
  Sex: Female

DRUGS (1)
  1. MELOXICAM. [Suspect]
     Active Substance: MELOXICAM
     Indication: ANKYLOSING SPONDYLITIS
     Dosage: UNK
     Route: 065

REACTIONS (7)
  - Melaena [Recovered/Resolved]
  - Rectal ulcer [Recovered/Resolved]
  - Large intestinal obstruction [Recovered/Resolved]
  - Off label use [Unknown]
  - Duodenal ulcer [Recovered/Resolved]
  - Haemoglobin decreased [Recovered/Resolved]
  - Large intestine perforation [Recovered/Resolved]

NARRATIVE: CASE EVENT DATE: 201809
